FAERS Safety Report 7790891-9 (Version None)
Quarter: 2011Q3

REPORT INFORMATION
  Report Type: 
  Country: None (occurrence: None)
  Receive Date: 20110930
  Receipt Date: 20110922
  Transmission Date: 20111222
  Serious: Yes (Hospitalization)
  Sender: FDA-Public Use
  Company Number: BR-ASTRAZENECA-2011SE57402

PATIENT
  Age: 55 Year
  Sex: Male
  Weight: 73 kg

DRUGS (6)
  1. NEXIUM [Suspect]
     Indication: GASTRITIS PROPHYLAXIS
     Route: 048
     Dates: start: 20080101, end: 20110801
  2. LOSARTAN POTASSIUM [Suspect]
     Indication: HYPERTENSION
     Dosage: ONCE DAILY
     Route: 048
     Dates: start: 20080101, end: 20110801
  3. 18 MEDICINES [Concomitant]
  4. NEXIUM [Suspect]
     Route: 048
     Dates: start: 20110801, end: 20110901
  5. NEXIUM [Suspect]
     Dosage: ONCE DAILY
     Route: 048
     Dates: start: 20110901
  6. CRESTOR [Suspect]
     Indication: HYPERCHOLESTEROLAEMIA
     Dosage: TWO TIMES A DAY
     Route: 048
     Dates: start: 20080101, end: 20110801

REACTIONS (2)
  - ACUTE MYOCARDIAL INFARCTION [None]
  - INAPPROPRIATE SCHEDULE OF DRUG ADMINISTRATION [None]
